FAERS Safety Report 8189300-X (Version None)
Quarter: 2012Q1

REPORT INFORMATION
  Report Type: 
  Country: None (occurrence: None)
  Receive Date: 20120307
  Receipt Date: 20120224
  Transmission Date: 20120608
  Serious: Yes (Other)
  Sender: FDA-Public Use
  Company Number: US-SANOFI-AVENTIS-2011SA084870

PATIENT
  Age: 65 Year
  Sex: Female

DRUGS (2)
  1. SOLOSTAR [Suspect]
     Dates: start: 20090101
  2. LANTUS [Suspect]
     Dosage: DOSE:35 UNIT(S)
     Route: 058
     Dates: start: 20091101

REACTIONS (6)
  - DRUG DOSE OMISSION [None]
  - BLINDNESS UNILATERAL [None]
  - CATARACT [None]
  - INTRAOCULAR PRESSURE INCREASED [None]
  - GLAUCOMA [None]
  - BLOOD GLUCOSE INCREASED [None]
